FAERS Safety Report 6439488-3 (Version None)
Quarter: 2009Q4

REPORT INFORMATION
  Report Type: 
  Country: None (occurrence: None)
  Receive Date: 20091113
  Receipt Date: 20091106
  Transmission Date: 20100525
  Serious: Yes (Hospitalization)
  Sender: FDA-Public Use
  Company Number: GB-JNJFOC-20091102993

PATIENT
  Sex: Female

DRUGS (2)
  1. CILEST [Suspect]
     Route: 048
  2. CILEST [Suspect]
     Indication: DRUG USE FOR UNKNOWN INDICATION
     Route: 048

REACTIONS (3)
  - APPENDICECTOMY [None]
  - DRUG ADMINISTRATION ERROR [None]
  - VAGINAL HAEMORRHAGE [None]
